FAERS Safety Report 4574056-X (Version None)
Quarter: 2005Q1

REPORT INFORMATION
  Report Type: 
  Country: None (occurrence: None)
  Receive Date: 20050204
  Receipt Date: 20050111
  Transmission Date: 20050727
  Serious: Yes (Other)
  Sender: FDA-Public Use
  Company Number: 2004228943US

PATIENT
  Age: 69 Year
  Sex: Female
  Weight: 83.9 kg

DRUGS (3)
  1. FLAGYL [Suspect]
     Indication: VAGINAL INFECTION
     Dates: start: 19700101
  2. ACETYLSALICYLIC ACID SRT [Concomitant]
  3. NADOLOL [Concomitant]

REACTIONS (6)
  - DYSPNOEA [None]
  - LOSS OF CONSCIOUSNESS [None]
  - PRURITUS GENERALISED [None]
  - RASH GENERALISED [None]
  - ULCER [None]
  - VARICELLA [None]
